FAERS Safety Report 14766989 (Version 5)
Quarter: 2019Q2

REPORT INFORMATION
  Report Type: Spontaneous
  Country: US (occurrence: US)
  Receive Date: 20180417
  Receipt Date: 20190422
  Transmission Date: 20190711
  Serious: Yes (Other)
  Sender: FDA-Public Use
  Company Number: US-ASTRAZENECA-2018SE49365

PATIENT
  Age: 22629 Day
  Sex: Female

DRUGS (30)
  1. NEXIUM [Suspect]
     Active Substance: ESOMEPRAZOLE MAGNESIUM
     Indication: OESOPHAGITIS
     Route: 048
     Dates: start: 20060224, end: 20151224
  2. PRILOSEC [Suspect]
     Active Substance: OMEPRAZOLE MAGNESIUM
     Dosage: GENERIC OMEPRAZOLE
     Route: 048
  3. ESCITALOPRAM [Concomitant]
     Active Substance: ESCITALOPRAM OXALATE
  4. ALLOPURINOL. [Concomitant]
     Active Substance: ALLOPURINOL
  5. CLONIDINE. [Concomitant]
     Active Substance: CLONIDINE
  6. DEXILANT [Suspect]
     Active Substance: DEXLANSOPRAZOLE
     Route: 048
     Dates: start: 200601, end: 201601
  7. PREVACID 24 HR [Suspect]
     Active Substance: LANSOPRAZOLE
     Route: 065
  8. BUMETANIDE. [Concomitant]
     Active Substance: BUMETANIDE
  9. ONDANSETRON [Concomitant]
     Active Substance: ONDANSETRON
  10. SUCRALFATE. [Concomitant]
     Active Substance: SUCRALFATE
  11. NEXIUM 24HR [Suspect]
     Active Substance: ESOMEPRAZOLE MAGNESIUM
     Route: 048
     Dates: start: 200601, end: 201601
  12. PRILOSEC OTC [Suspect]
     Active Substance: OMEPRAZOLE MAGNESIUM
     Route: 048
     Dates: start: 200601, end: 201601
  13. PROTONIX [Suspect]
     Active Substance: PANTOPRAZOLE SODIUM
     Route: 048
     Dates: start: 200601, end: 201601
  14. BUSPIRONE [Concomitant]
     Active Substance: BUSPIRONE HYDROCHLORIDE
  15. PROTONIX [Suspect]
     Active Substance: PANTOPRAZOLE SODIUM
     Route: 065
     Dates: start: 20100105, end: 20120210
  16. PRILOSEC [Suspect]
     Active Substance: OMEPRAZOLE MAGNESIUM
     Dosage: GENERIC
     Route: 065
     Dates: start: 20160108, end: 20160627
  17. NEXIUM [Suspect]
     Active Substance: ESOMEPRAZOLE MAGNESIUM
     Indication: OESOPHAGITIS
     Route: 048
     Dates: start: 200601, end: 201601
  18. NEXIUM [Suspect]
     Active Substance: ESOMEPRAZOLE MAGNESIUM
     Indication: OESOPHAGITIS
     Route: 048
  19. NEXIUM [Suspect]
     Active Substance: ESOMEPRAZOLE MAGNESIUM
     Indication: OESOPHAGITIS
     Route: 048
     Dates: start: 20080324, end: 20080423
  20. PRILOSEC [Suspect]
     Active Substance: OMEPRAZOLE MAGNESIUM
     Route: 065
     Dates: start: 200601, end: 201601
  21. MIRTAZAPINE. [Concomitant]
     Active Substance: MIRTAZAPINE
  22. BACLOFEN. [Concomitant]
     Active Substance: BACLOFEN
  23. METHADONE [Concomitant]
     Active Substance: METHADONE HYDROCHLORIDE
  24. PREVACID [Suspect]
     Active Substance: LANSOPRAZOLE
     Route: 048
     Dates: start: 200601, end: 201601
  25. VALSARTAN. [Concomitant]
     Active Substance: VALSARTAN
  26. PRAVASTATIN. [Concomitant]
     Active Substance: PRAVASTATIN
  27. ALPRAZOLAM. [Concomitant]
     Active Substance: ALPRAZOLAM
  28. CARVEDILOL. [Concomitant]
     Active Substance: CARVEDILOL
  29. LEVOTHYROXINE. [Concomitant]
     Active Substance: LEVOTHYROXINE
  30. RANITIDINE. [Concomitant]
     Active Substance: RANITIDINE

REACTIONS (5)
  - Chronic kidney disease [Not Recovered/Not Resolved]
  - Renal injury [Unknown]
  - Nephrogenic anaemia [Unknown]
  - Acute kidney injury [Not Recovered/Not Resolved]
  - Renal tubular necrosis [Unknown]

NARRATIVE: CASE EVENT DATE: 20140722
